FAERS Safety Report 9522341 (Version 1)
Quarter: 2013Q3

REPORT INFORMATION
  Report Type: Report from Study
  Country: GB (occurrence: GB)
  Receive Date: 20130913
  Receipt Date: 20130913
  Transmission Date: 20140515
  Serious: Yes (Hospitalization)
  Sender: FDA-Public Use
  Company Number: GB-JNJFOC-20130903589

PATIENT
  Age: 82 Year
  Sex: Female

DRUGS (2)
  1. REMICADE [Suspect]
     Indication: RHEUMATOID ARTHRITIS
     Route: 042
     Dates: start: 20030102, end: 20120117
  2. METHOTREXATE [Concomitant]
     Indication: RHEUMATOID ARTHRITIS
     Route: 065
     Dates: end: 20120117

REACTIONS (4)
  - Renal failure chronic [Unknown]
  - Cardiac failure congestive [Unknown]
  - Urinary tract infection [Unknown]
  - Nephritic syndrome [Unknown]
